FAERS Safety Report 7151565-0 (Version None)
Quarter: 2010Q4

REPORT INFORMATION
  Report Type: 
  Country: None (occurrence: None)
  Receive Date: 20101210
  Receipt Date: 20101203
  Transmission Date: 20110411
  Serious: Yes (Other)
  Sender: FDA-Public Use
  Company Number: US-MYLANLABS-2010S1021217

PATIENT
  Age: 39 Year
  Sex: Female
  Weight: 120.2 kg

DRUGS (7)
  1. VENLAFAXINE HYDROCHLORIDE [Suspect]
     Indication: DEPRESSION
     Route: 048
     Dates: start: 20101101, end: 20101118
  2. AMLODIPINE [Concomitant]
     Dates: start: 20000513
  3. CYCLESSA [Concomitant]
     Dates: start: 20100309
  4. NORCO [Concomitant]
     Dosage: 10MG/325MG
  5. ATENOLOL [Concomitant]
     Dates: start: 20100719
  6. LEVOTHYROXINE SODIUM [Concomitant]
     Dates: start: 20100419
  7. ANAPROX [Concomitant]
     Dates: start: 20100309

REACTIONS (3)
  - EYE SWELLING [None]
  - HYPERSENSITIVITY [None]
  - LIP SWELLING [None]
